FAERS Safety Report 4697609-7 (Version None)
Quarter: 2005Q2

REPORT INFORMATION
  Report Type: 
  Country: None (occurrence: None)
  Receive Date: 20050620
  Receipt Date: 20050216
  Transmission Date: 20051028
  Serious: Yes (Hospitalization)
  Sender: FDA-Public Use
  Company Number: 200511358US

PATIENT
  Age: 40 Year
  Sex: Female

DRUGS (5)
  1. LANTUS [Suspect]
     Indication: DIABETES MELLITUS
     Dosage: 165 U/DAY SC
     Route: 058
     Dates: start: 20050216
  2. AMARYL [Suspect]
  3. CLOZARIL [Concomitant]
  4. HUMALOG [Concomitant]
  5. BETABLOCKER [Concomitant]

REACTIONS (2)
  - BLOOD GLUCOSE INCREASED [None]
  - HYPERGLYCAEMIA [None]
